FAERS Safety Report 4618150-3 (Version None)
Quarter: 2005Q1

REPORT INFORMATION
  Report Type: 
  Country: None (occurrence: None)
  Receive Date: 20050322
  Receipt Date: 20050309
  Transmission Date: 20050727
  Serious: Yes (Other)
  Sender: FDA-Public Use
  Company Number: 2004228943US

PATIENT
  Age: 69 Year
  Sex: Female
  Weight: 83.9 kg

DRUGS (3)
  1. FLAGYL [Suspect]
     Indication: VAGINAL INFECTION
     Dates: start: 19700101
  2. ASPIRIN [Concomitant]
  3. NADOLOL [Concomitant]

REACTIONS (8)
  - CATARACT [None]
  - DYSPNOEA [None]
  - EAR PRURITUS [None]
  - FEELING ABNORMAL [None]
  - LOSS OF CONSCIOUSNESS [None]
  - NASAL DISCOMFORT [None]
  - PRURITUS [None]
  - RASH GENERALISED [None]
